FAERS Safety Report 11379466 (Version 2)
Quarter: 2015Q4

REPORT INFORMATION
  Report Type: Report from Study
  Country: US (occurrence: US)
  Receive Date: 20150814
  Receipt Date: 20151004
  Transmission Date: 20160304
  Serious: No
  Sender: FDA-Public Use
  Company Number: PHEH2015US006685

PATIENT
  Age: 33 Year
  Sex: Female

DRUGS (2)
  1. COSENTYX [Suspect]
     Active Substance: SECUKINUMAB
     Indication: PSORIASIS
     Dosage: 300 MG, UNK
     Route: 058
  2. COSENTYX [Suspect]
     Active Substance: SECUKINUMAB
     Dosage: 300 MG, QMO
     Route: 058
     Dates: start: 20150402

REACTIONS (10)
  - Cough [Recovering/Resolving]
  - Injection site bruising [Unknown]
  - Oropharyngeal pain [Recovering/Resolving]
  - Viral upper respiratory tract infection [Recovered/Resolved]
  - Upper-airway cough syndrome [Recovering/Resolving]
  - Arthralgia [Unknown]
  - Inappropriate schedule of drug administration [Unknown]
  - Pruritus generalised [Unknown]
  - Bursitis [Unknown]
  - Nasal congestion [Recovering/Resolving]

NARRATIVE: CASE EVENT DATE: 20150403
